FAERS Safety Report 8486087-8 (Version None)
Quarter: 2012Q3

REPORT INFORMATION
  Report Type: 
  Country: None (occurrence: None)
  Receive Date: 20120703
  Receipt Date: 20120622
  Transmission Date: 20120928
  Serious: Yes (Hospitalization)
  Sender: FDA-Public Use
  Company Number: US-VERTEX PHARMACEUTICALS INC.-AE-2012-009561

PATIENT
  Sex: Male

DRUGS (3)
  1. INCIVEK [Suspect]
     Indication: HEPATITIS C
     Route: 048
     Dates: start: 20120101
  2. RIBAVIRIN [Concomitant]
     Indication: HEPATITIS C
     Route: 048
     Dates: start: 20120101
  3. PEG-INTRON [Concomitant]
     Indication: HEPATITIS C
     Route: 058
     Dates: start: 20120101

REACTIONS (15)
  - MIGRAINE [None]
  - RASH [None]
  - WHITE BLOOD CELL COUNT DECREASED [None]
  - DIZZINESS [None]
  - ANAL PRURITUS [None]
  - HYPOAESTHESIA [None]
  - MYALGIA [None]
  - BLOOD PRESSURE DECREASED [None]
  - IRRITABLE BOWEL SYNDROME [None]
  - GASTRITIS [None]
  - PARAESTHESIA [None]
  - ABDOMINAL PAIN [None]
  - ANOSMIA [None]
  - AGEUSIA [None]
  - CHILLS [None]
